FAERS Safety Report 12162387 (Version 1)
Quarter: 2016Q1

REPORT INFORMATION
  Report Type: Spontaneous
  Country: US (occurrence: None)
  Receive Date: 20160308
  Receipt Date: 20160308
  Transmission Date: 20160526
  Serious: No
  Sender: FDA-Public Use
  Company Number: None

PATIENT
  Age: 78 Year
  Sex: Female

DRUGS (23)
  1. AZITHROMYCIN ANHYDROUS. [Concomitant]
     Active Substance: AZITHROMYCIN ANHYDROUS
  2. DOXYCYCLINE. [Concomitant]
     Active Substance: DOXYCYCLINE
  3. BREO ELLIPTA [Concomitant]
     Active Substance: FLUTICASONE FUROATE\VILANTEROL TRIFENATATE
  4. SPIRIVA [Concomitant]
     Active Substance: TIOTROPIUM BROMIDE MONOHYDRATE
  5. FUROSEMIDE. [Concomitant]
     Active Substance: FUROSEMIDE
  6. METFORMIN [Concomitant]
     Active Substance: METFORMIN HYDROCHLORIDE
  7. POT CHLORIDE [Concomitant]
     Active Substance: POTASSIUM CHLORIDE
  8. FALSODEX [Concomitant]
  9. LETROZOLE. [Concomitant]
     Active Substance: LETROZOLE
  10. ONDANSETRON [Concomitant]
     Active Substance: ONDANSETRON
  11. SIMVASTATIN. [Concomitant]
     Active Substance: SIMVASTATIN
  12. GABAPENTIN. [Concomitant]
     Active Substance: GABAPENTIN
  13. SYNTHROID [Concomitant]
     Active Substance: LEVOTHYROXINE SODIUM
  14. ASPIRIN. [Concomitant]
     Active Substance: ASPIRIN
  15. OXYCODO/APAP [Concomitant]
  16. LYRICA [Concomitant]
     Active Substance: PREGABALIN
  17. ALPRAZOLAM. [Concomitant]
     Active Substance: ALPRAZOLAM
  18. PREDNISONE. [Concomitant]
     Active Substance: PREDNISONE
  19. IBRANCE [Suspect]
     Active Substance: PALBOCICLIB
     Indication: BREAST CANCER
     Route: 048
     Dates: start: 20160217
  20. FLUTICASONE [Concomitant]
     Active Substance: FLUTICASONE\FLUTICASONE PROPIONATE
  21. CARVEDILOL. [Concomitant]
     Active Substance: CARVEDILOL
  22. PROAIR HFA [Concomitant]
     Active Substance: ALBUTEROL SULFATE
  23. CALCIUM [Concomitant]
     Active Substance: CALCIUM

REACTIONS (1)
  - White blood cell count decreased [None]

NARRATIVE: CASE EVENT DATE: 20160304
